FAERS Safety Report 7916581-7 (Version None)
Quarter: 2011Q4

REPORT INFORMATION
  Report Type: 
  Country: None (occurrence: None)
  Receive Date: 20111114
  Receipt Date: 20111107
  Transmission Date: 20120403
  Serious: Yes (Hospitalization, Other)
  Sender: FDA-Public Use
  Company Number: 2011SP052655

PATIENT
  Sex: Female

DRUGS (4)
  1. PEGASYS [Suspect]
     Indication: HEPATITIS
     Dates: start: 20111104
  2. PEGASYS [Suspect]
     Indication: HEPATITIS
     Dates: start: 20051007, end: 20060127
  3. RIBAVIRIN [Suspect]
     Indication: HEPATITIS
     Dates: start: 20051007, end: 20060127
  4. RIBAVIRIN [Suspect]
     Indication: HEPATITIS
     Dates: start: 20111104

REACTIONS (2)
  - PNEUMONIA [None]
  - ANAEMIA [None]
